FAERS Safety Report 6162960-0 (Version None)
Quarter: 2009Q2

REPORT INFORMATION
  Report Type: 
  Country: None (occurrence: None)
  Receive Date: 20090420
  Receipt Date: 20090414
  Transmission Date: 20091009
  Serious: Yes (Hospitalization)
  Sender: FDA-Public Use
  Company Number: 245288

PATIENT
  Age: 45 Year
  Sex: Female

DRUGS (2)
  1. CARBOPLATIN [Suspect]
     Indication: SMALL CELL LUNG CANCER STAGE UNSPECIFIED
     Dosage: FIRST DOSEM PER_CYCLE, 60 MG/M2 (PER_CYCLE)
  2. GEMCITABINE [Suspect]
     Indication: SMALL CELL LUNG CANCER STAGE UNSPECIFIED
     Dosage: FIRST DOSE, PER_CYCLE; 1250 MG/M2, (PER_CYCLE)

REACTIONS (9)
  - HEADACHE [None]
  - HEART RATE INCREASED [None]
  - HYPOMAGNESAEMIA [None]
  - MYDRIASIS [None]
  - PUPIL FIXED [None]
  - RESPIRATORY RATE DECREASED [None]
  - REVERSIBLE POSTERIOR LEUKOENCEPHALOPATHY SYNDROME [None]
  - STATUS EPILEPTICUS [None]
  - VISION BLURRED [None]
